FAERS Safety Report 9752978 (Version 1)
Quarter: 2013Q4

REPORT INFORMATION
  Report Type: Spontaneous
  Country: TR (occurrence: TR)
  Receive Date: 20131213
  Receipt Date: 20131213
  Transmission Date: 20140711
  Serious: Yes (Death, Other)
  Sender: FDA-Public Use
  Company Number: TR-JHP PHARMACEUTICALS, LLC-JHP201300752

PATIENT
  Age: 12 Year
  Sex: Female

DRUGS (3)
  1. COLY-MYCIN M PARENTERAL [Suspect]
     Indication: NOSOCOMIAL INFECTION
     Dosage: UNK
     Route: 042
  2. GLYCOPEPTIDE ANTIBACTERIALS [Suspect]
  3. AMPHOTERICIN B [Suspect]
     Dosage: UNK

REACTIONS (2)
  - Renal failure acute [Not Recovered/Not Resolved]
  - Infection [Fatal]
